FAERS Safety Report 6971079-8 (Version None)
Quarter: 2010Q3

REPORT INFORMATION
  Report Type: 
  Country: None (occurrence: None)
  Receive Date: 20100908
  Receipt Date: 20100831
  Transmission Date: 20110219
  Serious: Yes (Life-Threatening, Hospitalization)
  Sender: FDA-Public Use
  Company Number: DE-US-EMD SERONO, INC.-7015733

PATIENT
  Sex: Female

DRUGS (2)
  1. REBIF [Suspect]
     Indication: MULTIPLE SCLEROSIS
     Dates: start: 20100303, end: 20100322
  2. REBIF [Suspect]
     Dates: start: 20100322, end: 20100709

REACTIONS (2)
  - ANAEMIA [None]
  - THROMBOCYTOPENIA [None]
